FAERS Safety Report 10911825 (Version 2)
Quarter: 2015Q2

REPORT INFORMATION
  Report Type: Spontaneous
  Country: IT (occurrence: IT)
  Receive Date: 20150313
  Receipt Date: 20150417
  Transmission Date: 20150821
  Serious: Yes (Hospitalization)
  Sender: FDA-Public Use
  Company Number: IT-AUROBINDO-AUR-APL-2015-01954

PATIENT
  Age: 1 Year
  Sex: Male
  Weight: 9 kg

DRUGS (1)
  1. OLANZAPINE ORALDISPERSIBLE TABLET [Suspect]
     Active Substance: OLANZAPINE
     Indication: PRODUCT USED FOR UNKNOWN INDICATION
     Dosage: 10 MG, TOTAL
     Route: 048
     Dates: start: 20141127, end: 20141127

REACTIONS (12)
  - Crying [Recovered/Resolved]
  - Irritability [Recovered/Resolved]
  - Sopor [Recovered/Resolved]
  - Fall [Unknown]
  - Accidental exposure to product [Recovered/Resolved]
  - Agitation [Unknown]
  - Blood lactic acid increased [None]
  - Accidental poisoning [None]
  - Toxicity to various agents [Unknown]
  - Accidental exposure to product by child [None]
  - Craniocerebral injury [Unknown]
  - Sinus tachycardia [Recovered/Resolved]

NARRATIVE: CASE EVENT DATE: 20141127
